FAERS Safety Report 14374444 (Version 3)
Quarter: 2018Q1

REPORT INFORMATION
  Report Type: Spontaneous
  Country: US (occurrence: US)
  Receive Date: 20180111
  Receipt Date: 20180222
  Transmission Date: 20180509
  Serious: Yes (Hospitalization)
  Sender: FDA-Public Use
  Company Number: US-009507513-1712USA005689

PATIENT
  Age: 41 Year
  Sex: Female
  Weight: 99.77 kg

DRUGS (10)
  1. GENTAMICIN SULFATE. [Concomitant]
     Active Substance: GENTAMICIN SULFATE
     Indication: PREOPERATIVE CARE
     Dosage: 80 MG PRE-OPERATION
     Route: 042
     Dates: start: 20170908, end: 20170908
  2. ZEMURON [Concomitant]
     Active Substance: ROCURONIUM BROMIDE
     Indication: MUSCLE RELAXANT THERAPY
     Dosage: 30 MG, ONCE
     Dates: start: 20170908, end: 20170908
  3. FENTANYL. [Concomitant]
     Active Substance: FENTANYL
     Indication: ANALGESIC THERAPY
     Dosage: 50 MICROGRAMS WAS ADDED FOR ADDITIONAL ANALGESIA DURING THE OPERATION
     Route: 042
     Dates: start: 20170908, end: 20170908
  4. SEVOFLURANE. [Concomitant]
     Active Substance: SEVOFLURANE
     Indication: MAINTENANCE OF ANAESTHESIA
     Dosage: UNK
     Dates: start: 20170908, end: 20170908
  5. OXYGEN. [Concomitant]
     Active Substance: OXYGEN
     Dosage: 3 MIN PRIOR TO INDUCTION
     Dates: start: 20170908, end: 20170908
  6. FENTANYL. [Concomitant]
     Active Substance: FENTANYL
     Indication: INDUCTION OF ANAESTHESIA
     Dosage: 50 MICROGRAMS PRIOR TO INTUBATION
     Route: 042
     Dates: start: 20170908, end: 20170908
  7. SUCCINYLCHOLINE CHLORIDE. [Concomitant]
     Active Substance: SUCCINYLCHOLINE CHLORIDE
     Indication: INDUCTION OF ANAESTHESIA
     Dosage: 160 MG, ONCE
     Dates: start: 20170908, end: 20170908
  8. PROPOFOL. [Concomitant]
     Active Substance: PROPOFOL
     Indication: INDUCTION OF ANAESTHESIA
     Dosage: 200 MG IN OPARATION
     Route: 042
     Dates: start: 20170908, end: 20170908
  9. BRIDION [Suspect]
     Active Substance: SUGAMMADEX
     Indication: NEUROMUSCULAR BLOCKADE REVERSAL
     Dosage: ONE TIME DOSE OF 100 MG
     Route: 042
     Dates: start: 20170908, end: 20170908
  10. CIPROFLOXACIN. [Concomitant]
     Active Substance: CIPROFLOXACIN
     Indication: PREOPERATIVE CARE
     Dosage: 400 MG PRE-OPERATION
     Route: 042
     Dates: start: 20170908, end: 20170908

REACTIONS (2)
  - Bronchospasm [Recovered/Resolved]
  - Oxygen saturation decreased [Recovered/Resolved]

NARRATIVE: CASE EVENT DATE: 20170908
